FAERS Safety Report 4455941-6 (Version None)
Quarter: 2004Q3

REPORT INFORMATION
  Report Type: 
  Country: None (occurrence: None)
  Receive Date: 20040830
  Receipt Date: 20040405
  Transmission Date: 20050211
  Serious: No
  Sender: FDA-Public Use
  Company Number: 205721

PATIENT
  Age: 73 Year
  Sex: Female
  Weight: 79.8 kg

DRUGS (12)
  1. XOLAIR [Suspect]
     Indication: ASTHMA
     Dosage: 375 MG, QW2, SUBCUTANEOUS; 300 MG, Q2W, SUBCUTANEOUS; 150 MG, SUBCUTANEOUS
     Route: 058
     Dates: start: 20040213
  2. MEDROL [Concomitant]
  3. DIOVAN [Concomitant]
  4. LEVOXYL [Concomitant]
  5. SINGULAIR [Concomitant]
  6. ATIVAN [Concomitant]
  7. ELAVIL [Concomitant]
  8. NEXIUM [Concomitant]
  9. COMBIVENT (IPRATROPIUM BROMIDE, ALBUTEROL, ALBUTEROL SULFATE) [Concomitant]
  10. ADVAIR (SALMETEROL XINAFOATE, FLUTICASONE PROPIONATE) [Concomitant]
  11. XOPENI (LEVALBUTEROL HYDROCHLORIDE) [Concomitant]
  12. PULMICORT (BUDESONIDE) INHALATION VAPOUR, SOLUTION [Concomitant]

REACTIONS (1)
  - FATIGUE [None]
